FAERS Safety Report 5703087-9 (Version None)
Quarter: 2008Q2

REPORT INFORMATION
  Report Type: 
  Country: None (occurrence: None)
  Receive Date: 20080411
  Receipt Date: 20080401
  Transmission Date: 20081010
  Serious: Yes (Other)
  Sender: FDA-Public Use
  Company Number: IE-PFIZER INC-2007054796

PATIENT
  Sex: Female

DRUGS (5)
  1. LUSTRAL [Suspect]
     Indication: BIPOLAR DISORDER
     Route: 048
  2. LUSTRAL [Suspect]
     Indication: DEPRESSION
  3. LORAZEPAM [Concomitant]
     Indication: ANXIETY
     Dosage: DAILY DOSE:1MG
     Dates: start: 20050101, end: 20070620
  4. VALPROATE SODIUM [Concomitant]
     Dosage: DAILY DOSE:600MG
     Dates: start: 20040805, end: 20070620
  5. OLANZAPINE [Concomitant]
     Indication: BIPOLAR DISORDER
     Dosage: DAILY DOSE:5MG

REACTIONS (3)
  - ARRESTED LABOUR [None]
  - MALAISE [None]
  - PROLONGED LABOUR [None]
